FAERS Safety Report 25606804 (Version 2)
Quarter: 2025Q3

REPORT INFORMATION
  Report Type: Spontaneous
  Country: PK (occurrence: PK)
  Receive Date: 20250725
  Receipt Date: 20250804
  Transmission Date: 20251020
  Serious: Yes (Death)
  Sender: PFIZER
  Company Number: PK-PFIZER INC-PV202400077800

PATIENT
  Age: 68 Year
  Sex: Male
  Weight: 81 kg

DRUGS (5)
  1. TRAZIMERA [Suspect]
     Active Substance: TRASTUZUMAB-QYYP
     Indication: Metastatic gastric cancer
     Route: 042
  2. TRAZIMERA [Suspect]
     Active Substance: TRASTUZUMAB-QYYP
     Route: 042
  3. TRAZIMERA [Suspect]
     Active Substance: TRASTUZUMAB-QYYP
     Dosage: 440 MG, 3 WEEKLY
     Route: 042
     Dates: start: 202406
  4. PACLITAXEL [Concomitant]
     Active Substance: PACLITAXEL
     Route: 042
  5. CARBOPLATIN [Concomitant]
     Active Substance: CARBOPLATIN
     Route: 042

REACTIONS (8)
  - Malignant neoplasm progression [Fatal]
  - Metastatic gastric cancer [Fatal]
  - Haemoglobin decreased [Unknown]
  - Aspartate aminotransferase decreased [Unknown]
  - Globulins increased [Unknown]
  - Blood albumin decreased [Unknown]
  - Blood alkaline phosphatase decreased [Unknown]
  - Off label use [Unknown]

NARRATIVE: CASE EVENT DATE: 20250422
